FAERS Safety Report 9134963 (Version 1)
Quarter: 2013Q1

REPORT INFORMATION
  Report Type: Spontaneous
  Country: US (occurrence: US)
  Receive Date: 20130304
  Receipt Date: 20130304
  Transmission Date: 20140127
  Serious: No
  Sender: FDA-Public Use
  Company Number: US-BAYER-2013-020902

PATIENT
  Age: 55 Year
  Sex: Male

DRUGS (9)
  1. STAXYN (FDT/ODT) [Suspect]
     Indication: ERECTILE DYSFUNCTION
     Dosage: 1 DF, UNK
     Route: 048
     Dates: start: 20130214, end: 20130214
  2. BYSTOLIC [Concomitant]
  3. HYDROCHLOROTHIAZIDE [Concomitant]
  4. KOMBIGLYZE [Concomitant]
  5. BUSPIRONE [Concomitant]
  6. LOSARTAN [Concomitant]
  7. GLIMEPIRIDE [Concomitant]
  8. SPIRONOLACTONE [Concomitant]
  9. MINOXIDIL [Concomitant]

REACTIONS (1)
  - Drug ineffective [Not Recovered/Not Resolved]
